FAERS Safety Report 25534451 (Version 1)
Quarter: 2025Q3

REPORT INFORMATION
  Report Type: Spontaneous
  Country: IN (occurrence: IN)
  Receive Date: 20250709
  Receipt Date: 20250709
  Transmission Date: 20251021
  Serious: Yes (Hospitalization, Other)
  Sender: TORRENT PHARMA INC.
  Company Number: IN-MLMSERVICE-20250627-PI558646-00275-1

PATIENT
  Age: 96 Year
  Sex: Male

DRUGS (14)
  1. QUETIAPINE [Suspect]
     Active Substance: QUETIAPINE
     Indication: Hallucination, visual
     Route: 065
     Dates: start: 202311, end: 202311
  2. TRIHEXYPHENIDYL [Suspect]
     Active Substance: TRIHEXYPHENIDYL
     Indication: Tremor
     Route: 065
     Dates: start: 202311, end: 202404
  3. Budesonide, Salbutamol [Concomitant]
     Indication: Peripheral coldness
     Route: 045
     Dates: start: 2009, end: 202404
  4. DONEPEZIL [Concomitant]
     Active Substance: DONEPEZIL
     Indication: Hallucination, visual
     Route: 065
     Dates: start: 202311, end: 202404
  5. DULOXETINE [Concomitant]
     Active Substance: DULOXETINE
     Indication: Peripheral coldness
     Route: 065
     Dates: start: 202308, end: 202404
  6. Dutasteride, Tamsulosin [Concomitant]
     Indication: Product used for unknown indication
     Route: 065
     Dates: start: 2023, end: 202404
  7. LINAGLIPTIN [Concomitant]
     Active Substance: LINAGLIPTIN
     Indication: Product used for unknown indication
     Route: 065
     Dates: start: 2023, end: 202404
  8. MELATONIN [Concomitant]
     Active Substance: MELATONIN
     Indication: Neuropsychological symptoms
     Route: 048
     Dates: start: 202311, end: 202404
  9. MEMANTINE [Concomitant]
     Active Substance: MEMANTINE
     Indication: Product used for unknown indication
     Route: 065
     Dates: start: 202311, end: 202404
  10. PREGABALIN [Concomitant]
     Active Substance: PREGABALIN
     Indication: Pain in extremity
     Route: 048
     Dates: start: 2009, end: 202404
  11. RASAGILINE [Concomitant]
     Active Substance: RASAGILINE
     Indication: Tremor
     Route: 065
     Dates: start: 202311, end: 202404
  12. RISPERIDONE [Concomitant]
     Active Substance: RISPERIDONE
     Indication: Product used for unknown indication
     Route: 065
     Dates: start: 202312, end: 202403
  13. RIVASTIGMINE [Concomitant]
     Active Substance: RIVASTIGMINE
     Indication: Product used for unknown indication
     Route: 065
     Dates: end: 202404
  14. Spironolactone, Torasemide [Concomitant]
     Indication: Oedema peripheral
     Route: 065
     Dates: start: 2022, end: 202404

REACTIONS (3)
  - Aphthous ulcer [Recovered/Resolved]
  - Delirium [Recovering/Resolving]
  - Dry mouth [Unknown]

NARRATIVE: CASE EVENT DATE: 20240101
